FAERS Safety Report 18328370 (Version 3)
Quarter: 2020Q4

REPORT INFORMATION
  Report Type: Spontaneous
  Country: ZA (occurrence: ZA)
  Receive Date: 20200930
  Receipt Date: 20201103
  Transmission Date: 20210113
  Serious: Yes (Other)
  Sender: FDA-Public Use
  Company Number: ZA-ASTELLAS-2020US026781

PATIENT
  Age: 79 Year
  Sex: Male

DRUGS (2)
  1. XTANDI [Suspect]
     Active Substance: ENZALUTAMIDE
     Dosage: 80 MG, ONCE DAILY (HALF DOSE)
     Route: 065
  2. XTANDI [Suspect]
     Active Substance: ENZALUTAMIDE
     Indication: PRODUCT USED FOR UNKNOWN INDICATION
     Route: 048
     Dates: start: 20180130, end: 20200605

REACTIONS (5)
  - Gastric haemorrhage [Recovered/Resolved]
  - Diarrhoea [Recovered/Resolved]
  - Confusional state [Unknown]
  - Gastrointestinal ulcer [Unknown]
  - Anxiety [Unknown]

NARRATIVE: CASE EVENT DATE: 20200516
